FAERS Safety Report 5901590-X (Version None)
Quarter: 2008Q3

REPORT INFORMATION
  Report Type: 
  Country: None (occurrence: None)
  Receive Date: 20080926
  Receipt Date: 20080926
  Transmission Date: 20090109
  Serious: No
  Sender: FDA-Public Use
  Company Number: None

PATIENT
  Age: 45 Year
  Sex: Female
  Weight: 83.9154 kg

DRUGS (1)
  1. PROPRANOLOL [Suspect]
     Indication: MITRAL VALVE PROLAPSE
     Dates: start: 20080908, end: 20080925

REACTIONS (4)
  - DYSPNOEA [None]
  - IRRITABILITY [None]
  - PALPITATIONS [None]
  - PHARMACEUTICAL PRODUCT COMPLAINT [None]
